FAERS Safety Report 14737900 (Version 1)
Quarter: 2018Q2

REPORT INFORMATION
  Report Type: Not Available
  Country: US (occurrence: US)
  Receive Date: 20180409
  Receipt Date: 20180409
  Transmission Date: 20180711
  Serious: Yes (Hospitalization)
  Sender: FDA-Public Use
  Company Number: US-NEUROCRINE BIOSCIENCES INC.-2018NBI00957

PATIENT
  Age: 81 Year
  Sex: Female

DRUGS (18)
  1. PLAVIX [Concomitant]
     Active Substance: CLOPIDOGREL BISULFATE
  2. OLANZAPINE. [Concomitant]
     Active Substance: OLANZAPINE
  3. LYRICA [Concomitant]
     Active Substance: PREGABALIN
  4. ZYVOX [Concomitant]
     Active Substance: LINEZOLID
  5. DETROL [Concomitant]
     Active Substance: TOLTERODINE TARTRATE
  6. NITROSTAT [Concomitant]
     Active Substance: NITROGLYCERIN
  7. CELEBREX [Concomitant]
     Active Substance: CELECOXIB
  8. PRAVACHOL [Concomitant]
     Active Substance: PRAVASTATIN SODIUM
  9. INGREZZA [Suspect]
     Active Substance: VALBENAZINE
     Route: 048
     Dates: start: 20180206
  10. PROTONIX [Concomitant]
     Active Substance: PANTOPRAZOLE SODIUM
  11. INGREZZA [Suspect]
     Active Substance: VALBENAZINE
     Indication: PRODUCT USED FOR UNKNOWN INDICATION
     Route: 048
     Dates: start: 20171229, end: 20180205
  12. MYLANTA [Concomitant]
     Active Substance: ALUMINUM HYDROXIDE\DIMETHICONE\MAGNESIUM HYDROXIDE
  13. WELLBUTRIN XL [Concomitant]
     Active Substance: BUPROPION HYDROCHLORIDE
  14. AVAPRO [Concomitant]
     Active Substance: IRBESARTAN
  15. BIDIL [Concomitant]
     Active Substance: HYDRALAZINE HYDROCHLORIDE\ISOSORBIDE DINITRATE
  16. COREG CR [Concomitant]
     Active Substance: CARVEDILOL PHOSPHATE
  17. LASIX [Concomitant]
     Active Substance: FUROSEMIDE
  18. VITAMIN D2 [Concomitant]
     Active Substance: ERGOCALCIFEROL

REACTIONS (1)
  - Hospitalisation [Unknown]

NARRATIVE: CASE EVENT DATE: 201803
